FAERS Safety Report 23164675 (Version 1)
Quarter: 2023Q4

REPORT INFORMATION
  Report Type: Spontaneous
  Country: AU (occurrence: AU)
  Receive Date: 20231109
  Receipt Date: 20231109
  Transmission Date: 20240109
  Serious: Yes (Other)
  Sender: FDA-Public Use
  Company Number: AU-MYLANLABS-2023M1119088

PATIENT
  Age: 60 Year
  Sex: Male

DRUGS (2)
  1. IMATINIB [Suspect]
     Active Substance: IMATINIB
     Indication: Gastrointestinal stromal tumour
     Dosage: UNK
     Route: 065
     Dates: start: 201605
  2. IMATINIB [Suspect]
     Active Substance: IMATINIB
     Dosage: UNK, DOSE INCREASED
     Route: 065
     Dates: start: 202003, end: 202004

REACTIONS (2)
  - Drug ineffective [Unknown]
  - Periorbital oedema [Unknown]
